FAERS Safety Report 19227630 (Version 1)
Quarter: 2021Q2

REPORT INFORMATION
  Report Type: Spontaneous
  Country: US (occurrence: US)
  Receive Date: 20210506
  Receipt Date: 20210506
  Transmission Date: 20210717
  Serious: Yes (Hospitalization)
  Sender: FDA-Public Use
  Company Number: US-PARI RESPIRATORY EQUIPMENT, INC.-2021PAR00030

PATIENT
  Sex: Male

DRUGS (1)
  1. KITABIS PAK [Suspect]
     Active Substance: TOBRAMYCIN
     Indication: CYSTIC FIBROSIS
     Dosage: 300/5 MG/ML (1 AMPULE) VIA NEBULIZER, 2X/DAY EVERY OTHER MONTH (ODD MONTHS ON, EVEN MONTH OFF)

REACTIONS (1)
  - Urinary tract infection [Unknown]
